FAERS Safety Report 25261141 (Version 4)
Quarter: 2025Q3

REPORT INFORMATION
  Report Type: Spontaneous
  Country: US (occurrence: US)
  Receive Date: 20250501
  Receipt Date: 20250826
  Transmission Date: 20251021
  Serious: No
  Sender: PFIZER
  Company Number: US-PFIZER INC-202500090640

PATIENT
  Age: 59 Year
  Sex: Female
  Weight: 94.6 kg

DRUGS (2)
  1. PACLITAXEL [Suspect]
     Active Substance: PACLITAXEL
     Indication: Endometrial cancer
     Dosage: 287.52 MG, EVERY 3 WEEKS (ONCE)
     Route: 042
     Dates: start: 20250124
  2. PACLITAXEL [Suspect]
     Active Substance: PACLITAXEL
     Indication: Uterine cancer
     Route: 042
     Dates: start: 20250219, end: 20250523

REACTIONS (4)
  - Infusion related reaction [Unknown]
  - Skin reaction [Unknown]
  - Rash [Unknown]
  - Off label use [Unknown]

NARRATIVE: CASE EVENT DATE: 20250124
